FAERS Safety Report 5633825-5 (Version None)
Quarter: 2008Q1

REPORT INFORMATION
  Report Type: 
  Country: None (occurrence: None)
  Receive Date: 20080219
  Receipt Date: 20071112
  Transmission Date: 20080703
  Serious: Yes (Hospitalization)
  Sender: FDA-Public Use
  Company Number: 220003N07FRA

PATIENT

DRUGS (1)
  1. SAIZEN [Suspect]

REACTIONS (1)
  - BRAIN ABSCESS [None]
